FAERS Safety Report 15008917 (Version 1)
Quarter: 2018Q2

REPORT INFORMATION
  Report Type: Other
  Country: DE (occurrence: DE)
  Receive Date: 20180613
  Receipt Date: 20180613
  Transmission Date: 20180711
  Serious: Yes (Life-Threatening)
  Sender: FDA-Public Use
  Company Number: DE-MACLEODS PHARMACEUTICALS US LTD-MAC2018014259

PATIENT

DRUGS (2)
  1. IRBESARTAN 300MG TABLET [Suspect]
     Active Substance: IRBESARTAN
     Indication: RENAL HYPERTENSION
     Dosage: PZN: 11544915,FILM-COATED TABLET
     Route: 048
     Dates: start: 20180501, end: 20180503
  2. CANNABIS [Concomitant]
     Active Substance: CANNABIS SATIVA SUBSP. INDICA TOP
     Indication: PRODUCT USED FOR UNKNOWN INDICATION
     Dosage: UNK
     Route: 065

REACTIONS (4)
  - Tachycardia [Recovered/Resolved]
  - Palpitations [Recovered/Resolved]
  - Blood pressure increased [Recovered/Resolved]
  - Product substitution issue [Unknown]

NARRATIVE: CASE EVENT DATE: 20180501
